FAERS Safety Report 24203521 (Version 3)
Quarter: 2024Q4

REPORT INFORMATION
  Report Type: Report from Study
  Country: US (occurrence: US)
  Receive Date: 20240813
  Receipt Date: 20241030
  Transmission Date: 20250115
  Serious: Yes (Other)
  Sender: ABBVIE
  Company Number: US-ABBVIE-5875368

PATIENT
  Age: 78 Year
  Sex: Female

DRUGS (4)
  1. RINVOQ [Suspect]
     Active Substance: UPADACITINIB
     Indication: Colitis ulcerative
     Route: 048
     Dates: start: 202312
  2. RINVOQ [Suspect]
     Active Substance: UPADACITINIB
     Indication: Colitis ulcerative
     Dosage: LAST ADMIN DATE 2024
     Route: 048
     Dates: start: 20240322
  3. RINVOQ [Suspect]
     Active Substance: UPADACITINIB
     Indication: Colitis ulcerative
     Route: 048
     Dates: start: 202407, end: 20240924
  4. RINVOQ [Suspect]
     Active Substance: UPADACITINIB
     Indication: Colitis ulcerative
     Dosage: FIRST ADMIN DATE 2024
     Route: 048
     Dates: end: 202407

REACTIONS (16)
  - Carpal tunnel syndrome [Recovered/Resolved]
  - Pyrexia [Recovered/Resolved]
  - Spinal deformity [Unknown]
  - Fall [Recovering/Resolving]
  - Tendon injury [Recovering/Resolving]
  - Anaemia [Not Recovered/Not Resolved]
  - Irritable bowel syndrome [Not Recovered/Not Resolved]
  - Dizziness [Recovered/Resolved]
  - Hypotension [Recovered/Resolved]
  - Rotator cuff syndrome [Unknown]
  - Carotid artery disease [Unknown]
  - Thyroid mass [Unknown]
  - Red blood cell abnormality [Unknown]
  - Fall [Recovered/Resolved]
  - Chest injury [Recovering/Resolving]
  - Foot fracture [Unknown]

NARRATIVE: CASE EVENT DATE: 20240101
